FAERS Safety Report 9270738 (Version 1)
Quarter: 2013Q2

REPORT INFORMATION
  Report Type: Spontaneous
  Country: US (occurrence: US)
  Receive Date: 20130503
  Receipt Date: 20130503
  Transmission Date: 20140414
  Serious: No
  Sender: FDA-Public Use
  Company Number: US-ASTRAZENECA-2013SE27866

PATIENT
  Age: 70 Year
  Sex: Female
  Weight: 61.2 kg

DRUGS (8)
  1. SYMBICORT [Suspect]
     Indication: ASTHMA
     Dosage: 160 MCG 2 PUFFS BID
     Route: 055
     Dates: start: 2010
  2. CRESTOR [Suspect]
     Indication: CARDIAC DISORDER
     Dosage: DAILY
     Route: 048
     Dates: start: 2008
  3. METOPROLOL [Suspect]
     Indication: CARDIAC DISORDER
     Route: 048
     Dates: start: 2008
  4. PROAIR [Concomitant]
     Indication: RESPIRATORY DISORDER
     Dosage: PRN
     Route: 055
     Dates: start: 2010
  5. SINGULAIR [Concomitant]
     Dosage: DAILY
     Route: 048
     Dates: start: 2010
  6. LEXAPRO [Concomitant]
     Indication: DEPRESSION
     Route: 048
     Dates: start: 2007
  7. ZANTAC [Concomitant]
     Indication: ABDOMINAL DISCOMFORT
     Dosage: DAILY
     Route: 048
     Dates: start: 2008
  8. NEBULIZER [Concomitant]
     Indication: RESPIRATORY DISORDER
     Dosage: PRN
     Route: 055
     Dates: start: 2010

REACTIONS (4)
  - Dysphonia [Unknown]
  - Drug ineffective [Unknown]
  - Off label use [Unknown]
  - Circumstance or information capable of leading to medication error [Unknown]
